FAERS Safety Report 7708354-5 (Version None)
Quarter: 2011Q3

REPORT INFORMATION
  Report Type: 
  Country: None (occurrence: None)
  Receive Date: 20110819
  Receipt Date: 20110812
  Transmission Date: 20111222
  Serious: Yes (Life-Threatening, Hospitalization, Congenital Anomaly)
  Sender: FDA-Public Use
  Company Number: TIR-00654

PATIENT
  Sex: Female

DRUGS (1)
  1. LEVOTHYROXINE SODIUM [Suspect]
     Dosage: TRANSPLACENTAL
     Route: 064

REACTIONS (18)
  - GENE MUTATION [None]
  - MATERNAL DRUGS AFFECTING FOETUS [None]
  - BLOOD SODIUM DECREASED [None]
  - PREMATURE BABY [None]
  - NEONATAL TACHYCARDIA [None]
  - NEONATAL INTESTINAL DILATATION [None]
  - GASTROINTESTINAL DISORDER CONGENITAL [None]
  - USE OF ACCESSORY RESPIRATORY MUSCLES [None]
  - RESPIRATORY DISORDER NEONATAL [None]
  - ABDOMINAL DISTENSION [None]
  - DIARRHOEA NEONATAL [None]
  - STOOL CHLORIDE INCREASED [None]
  - BLOOD BILIRUBIN INCREASED [None]
  - CARDIAC MURMUR [None]
  - FAECES DISCOLOURED [None]
  - STOOL PH DECREASED [None]
  - POLYHYDRAMNIOS [None]
  - NEONATAL TACHYPNOEA [None]
